FAERS Safety Report 6985287-3 (Version None)
Quarter: 2010Q3

REPORT INFORMATION
  Report Type: 
  Country: None (occurrence: None)
  Receive Date: 20100915
  Receipt Date: 20100909
  Transmission Date: 20110219
  Serious: Yes (Death)
  Sender: FDA-Public Use
  Company Number: JP-SANOFI-AVENTIS-2010SA050403

PATIENT
  Age: 70 Year
  Sex: Male

DRUGS (4)
  1. OXALIPLATIN [Suspect]
     Indication: RECTAL CANCER
     Route: 041
  2. CALCIUM LEVOFOLINATE [Suspect]
     Indication: RECTAL CANCER
     Route: 041
  3. FLUOROURACIL [Suspect]
     Indication: RECTAL CANCER
     Route: 040
  4. FLUOROURACIL [Suspect]
     Route: 041

REACTIONS (2)
  - FEBRILE NEUTROPENIA [None]
  - PULMONARY HAEMORRHAGE [None]
